FAERS Safety Report 6381760-X (Version None)
Quarter: 2009Q3

REPORT INFORMATION
  Report Type: 
  Country: None (occurrence: None)
  Receive Date: 20090930
  Receipt Date: 20090925
  Transmission Date: 20100115
  Serious: Yes (Death, Hospitalization)
  Sender: FDA-Public Use
  Company Number: PHHO2009US11467

PATIENT
  Sex: Male
  Weight: 87 kg

DRUGS (2)
  1. RAD 666 RAD+TAB [Suspect]
     Indication: METASTATIC RENAL CELL CARCINOMA
     Dosage: 5 MG DAILY
     Route: 048
     Dates: start: 20090420, end: 20090908
  2. AVASTIN COMP-AVA+ [Suspect]
     Indication: METASTATIC RENAL CELL CARCINOMA
     Dosage: 10 MG.M2
     Route: 042
     Dates: start: 20090420, end: 20090908

REACTIONS (7)
  - BRAIN OEDEMA [None]
  - HAEMORRHAGE INTRACRANIAL [None]
  - INTRACRANIAL TUMOUR HAEMORRHAGE [None]
  - INTRAVENTRICULAR HAEMORRHAGE [None]
  - MALIGNANT NEOPLASM PROGRESSION [None]
  - METASTASES TO CENTRAL NERVOUS SYSTEM [None]
  - SURGERY [None]
